FAERS Safety Report 5014825-5 (Version None)
Quarter: 2006Q2

REPORT INFORMATION
  Report Type: 
  Country: None (occurrence: None)
  Receive Date: 20060419
  Receipt Date: 20050624
  Transmission Date: 20061013
  Serious: Yes (Other)
  Sender: FDA-Public Use
  Company Number: 2005-02220

PATIENT
  Age: 61 Year
  Sex: Female

DRUGS (1)
  1. FERRLECIT [Suspect]
     Indication: BLOOD IRON DECREASED
     Dosage: 31.25MG, SINGLE, INTRAVENOUS
     Route: 042
     Dates: start: 20050623, end: 20050623

REACTIONS (5)
  - CHEST PAIN [None]
  - HYPERSENSITIVITY [None]
  - HYPOTENSION [None]
  - SWELLING FACE [None]
  - SWOLLEN TONGUE [None]
